FAERS Safety Report 20314830 (Version 1)
Quarter: 2022Q1

REPORT INFORMATION
  Report Type: Spontaneous
  Country: US (occurrence: None)
  Receive Date: 20220110
  Receipt Date: 20220110
  Transmission Date: 20220423
  Serious: No
  Sender: FDA-Public Use
  Company Number: US-ROCHE-2898505

PATIENT
  Sex: Female
  Weight: 90.7 kg

DRUGS (1)
  1. RITUXIMAB [Suspect]
     Active Substance: RITUXIMAB
     Indication: Multiple sclerosis
     Dosage: SUBSEQUENT DOSES WAS RECEIVED ON 05/OCT/2020 AND 12/APR/2021.
     Route: 065
     Dates: start: 20200921

REACTIONS (1)
  - Drug hypersensitivity [Unknown]
